FAERS Safety Report 6195961-7 (Version None)
Quarter: 2009Q2

REPORT INFORMATION
  Report Type: 
  Country: None (occurrence: None)
  Receive Date: 20090520
  Receipt Date: 20090514
  Transmission Date: 20091009
  Serious: Yes (Other)
  Sender: FDA-Public Use
  Company Number: PHEH2009US04704

PATIENT

DRUGS (1)
  1. DIOVAN [Suspect]

REACTIONS (1)
  - HYPERKALAEMIA [None]
